FAERS Safety Report 9928036 (Version 1)
Quarter: 2014Q1

REPORT INFORMATION
  Report Type: Spontaneous
  Country: CH (occurrence: None)
  Receive Date: 20140224
  Receipt Date: 20140224
  Transmission Date: 20141002
  Serious: Yes (Hospitalization)
  Sender: FDA-Public Use
  Company Number: 20140069

PATIENT
  Age: 45 Year
  Sex: Female

DRUGS (7)
  1. FERINJECT [Suspect]
     Indication: IRON DEFICIENCY ANAEMIA
     Dosage: 1 IN 1  TOTAL, 1 DAYS
  2. PANTOPRAZOL [Concomitant]
  3. CARBASALATE CALCIUM [Concomitant]
  4. COLECALCIFEROL,400  IE [Concomitant]
  5. PARACETAMOL [Concomitant]
  6. GABAPENTIN [Concomitant]
  7. ATORVASTATIN [Concomitant]

REACTIONS (5)
  - Hypophosphataemia [None]
  - Nausea [None]
  - Vertigo [None]
  - Diarrhoea [None]
  - Paraesthesia [None]
